FAERS Safety Report 8883620 (Version 2)
Quarter: 2012Q4

REPORT INFORMATION
  Report Type: Report from Study
  Country: US (occurrence: US)
  Receive Date: 20121102
  Receipt Date: 20121228
  Transmission Date: 20130627
  Serious: Yes (Hospitalization, Other)
  Sender: FDA-Public Use
  Company Number: US-ABBOTT-12P-163-1001314-00

PATIENT
  Age: 43 Year
  Sex: Male
  Weight: 58.11 kg

DRUGS (1)
  1. HUMIRA PEN [Suspect]
     Indication: CROHN^S DISEASE
     Dates: start: 201203

REACTIONS (7)
  - Enteritis [Recovering/Resolving]
  - Abdominal adhesions [Recovered/Resolved]
  - Abdominal pain [Recovered/Resolved]
  - Aphagia [Unknown]
  - Fluid intake reduced [Unknown]
  - Weight decreased [Not Recovered/Not Resolved]
  - Fistula [Unknown]
